FAERS Safety Report 18098954 (Version 1)
Quarter: 2020Q3

REPORT INFORMATION
  Report Type: Spontaneous
  Country: US (occurrence: US)
  Receive Date: 20200731
  Receipt Date: 20200731
  Transmission Date: 20201103
  Serious: No
  Sender: FDA-Public Use
  Company Number: US-PFIZER INC-2020078290

PATIENT
  Age: 78 Year
  Sex: Male

DRUGS (2)
  1. PHYTOMENADIONE [Suspect]
     Active Substance: PHYTONADIONE
     Dosage: UNK
  2. CENTRUM SILVER MEN^S 50+ [Suspect]
     Active Substance: MINERALS\VITAMINS
     Dosage: UNK, 1X/DAY

REACTIONS (2)
  - Drug hypersensitivity [Unknown]
  - Constipation [Recovering/Resolving]
